FAERS Safety Report 5647870-7 (Version None)
Quarter: 2008Q1

REPORT INFORMATION
  Report Type: 
  Country: None (occurrence: None)
  Receive Date: 20080228
  Receipt Date: 20080212
  Transmission Date: 20080703
  Serious: Yes (Other)
  Sender: FDA-Public Use
  Company Number: 8029035

PATIENT
  Age: 24 Year
  Sex: Male
  Weight: 109.1 kg

DRUGS (1)
  1. KEPPRA [Suspect]
     Indication: EPILEPSY
     Dosage: 500 MG 2/D PO
     Route: 048
     Dates: start: 20080105, end: 20080111

REACTIONS (8)
  - ABNORMAL DREAMS [None]
  - AGITATION [None]
  - ANGER [None]
  - HALLUCINATION [None]
  - INITIAL INSOMNIA [None]
  - MORBID THOUGHTS [None]
  - NIGHTMARE [None]
  - SUICIDAL IDEATION [None]
